FAERS Safety Report 4856987-6 (Version None)
Quarter: 2005Q4

REPORT INFORMATION
  Report Type: 
  Country: None (occurrence: None)
  Receive Date: 20051219
  Receipt Date: 20041207
  Transmission Date: 20060501
  Serious: No
  Sender: FDA-Public Use
  Company Number: US-GLAXOSMITHKLINE-A0536310A

PATIENT
  Age: 47 Year
  Sex: Female

DRUGS (2)
  1. NICODERM CQ [Suspect]
     Dates: start: 20041001, end: 20041028
  2. NICODERM CQ [Suspect]

REACTIONS (5)
  - CHEST PAIN [None]
  - DRY EYE [None]
  - DYSPNOEA [None]
  - FATIGUE [None]
  - HYPERTENSION [None]
